FAERS Safety Report 8006710-1 (Version None)
Quarter: 2011Q4

REPORT INFORMATION
  Report Type: 
  Country: None (occurrence: None)
  Receive Date: 20111227
  Receipt Date: 20111219
  Transmission Date: 20120403
  Serious: Yes (Death)
  Sender: FDA-Public Use
  Company Number: ES-CELGENEUS-144-50794-11120276

PATIENT
  Age: 40 Year
  Sex: Female

DRUGS (2)
  1. RBC TRANSFUSIONS [Concomitant]
     Route: 041
     Dates: start: 20100101, end: 20100101
  2. VIDAZA [Suspect]
     Dosage: 100 MILLIGRAM
     Route: 065
     Dates: start: 20080301, end: 20101201

REACTIONS (1)
  - MYELODYSPLASTIC SYNDROME [None]
